FAERS Safety Report 23184530 (Version 1)
Quarter: 2023Q4

REPORT INFORMATION
  Report Type: Other
  Country: MK (occurrence: MK)
  Receive Date: 20231115
  Receipt Date: 20231115
  Transmission Date: 20240110
  Serious: Yes (Death, Hospitalization)
  Sender: FDA-Public Use
  Company Number: MK-Bion-012313

PATIENT
  Sex: Female

DRUGS (3)
  1. DEXAMETHASONE [Suspect]
     Active Substance: DEXAMETHASONE
     Indication: Rickettsiosis
  2. NADROPARIN [Concomitant]
     Active Substance: NADROPARIN
     Indication: Rickettsiosis
     Dosage: 5,700 IU TWICE DAILY
  3. HUMAN PLASMA [Concomitant]
     Active Substance: HUMAN PLASMA
     Indication: Rickettsiosis
     Dosage: 2 U

REACTIONS (1)
  - Drug ineffective [Fatal]
